FAERS Safety Report 10464126 (Version 2)
Quarter: 2015Q2

REPORT INFORMATION
  Report Type: Spontaneous
  Country: GB (occurrence: None)
  Receive Date: 20140917
  Receipt Date: 20150616
  Transmission Date: 20150821
  Serious: Yes (Other)
  Sender: FDA-Public Use
  Company Number: GB-H14001-14-00568

PATIENT
  Age: 63 Year
  Sex: Male

DRUGS (8)
  1. CHLORPHENAMINE (CHLORPHENAMINE) (UNKNOWN) (CHLORPHENAMINE) [Concomitant]
  2. MOMETASONE (MOMETASONE) (UNKNOWN) (MOMETASONE) [Concomitant]
  3. QVAR (BECLOMETASONE DIPROPIONATE) [Concomitant]
  4. NASAL DROPS (NASAL PREPARATIONS) (DROPS) [Concomitant]
  5. BECLOMETASONE (BECLOMETASONE) (UNKNOWN) (BECLOMETASONE) [Concomitant]
  6. PULMICORT (BUDESONIDE) (UNKNOWN) (BUDESONIDE) [Concomitant]
  7. CO-AMOXICLAV [Suspect]
     Active Substance: AMOXICILLIN\CLAVULANIC ACID
     Indication: PRODUCT USED FOR UNKNOWN INDICATION
     Dosage: 3 DOSAGE FORMS OF 500/125 MCG (1 DOSAGE FORMS, 3 IN 1 D)
     Route: 048
     Dates: start: 20140826
  8. AMOXICILLIN (AMOXICILLIN) (UNKNOWN) (AMOXICILLIN) [Concomitant]

REACTIONS (1)
  - Anxiety [None]

NARRATIVE: CASE EVENT DATE: 20140828
